FAERS Safety Report 7029618-7 (Version None)
Quarter: 2010Q4

REPORT INFORMATION
  Report Type: 
  Country: None (occurrence: None)
  Receive Date: 20101005
  Receipt Date: 20100928
  Transmission Date: 20110411
  Serious: Yes (Life-Threatening, Disabling)
  Sender: FDA-Public Use
  Company Number: US-MERCK-1008USA02420

PATIENT
  Age: 52 Year
  Sex: Male
  Weight: 79 kg

DRUGS (5)
  1. JANUVIA [Suspect]
     Dosage: IN THE MORNING
     Route: 048
     Dates: start: 20080601, end: 20100816
  2. COZAAR [Concomitant]
     Route: 048
     Dates: start: 20090930
  3. OXYCONTIN [Concomitant]
     Route: 048
     Dates: start: 20090601
  4. HYZAAR [Concomitant]
     Route: 048
     Dates: start: 20090601
  5. DIAZEPAM [Concomitant]
     Indication: ANXIETY
     Route: 048
     Dates: start: 20090601

REACTIONS (6)
  - ABDOMINAL PAIN UPPER [None]
  - DECREASED APPETITE [None]
  - NAUSEA [None]
  - PANCREATITIS [None]
  - VOMITING [None]
  - WEIGHT DECREASED [None]
